FAERS Safety Report 17540943 (Version 2)
Quarter: 2020Q2

REPORT INFORMATION
  Report Type: Report from Study
  Country: JP (occurrence: JP)
  Receive Date: 20200313
  Receipt Date: 20200403
  Transmission Date: 20200713
  Serious: Yes (Life-Threatening)
  Sender: FDA-Public Use
  Company Number: JP-ALLERGAN-2005394US

PATIENT
  Sex: Male
  Weight: 52 kg

DRUGS (4)
  1. LONASEN [Concomitant]
     Active Substance: BLONANSERIN
     Dosage: UNK
     Dates: start: 20180724, end: 20190618
  2. RISPERIDONE. [Concomitant]
     Active Substance: RISPERIDONE
     Dosage: UNK
     Dates: start: 20180616, end: 20180618
  3. ASENAPINE MALEATE UNK [Suspect]
     Active Substance: ASENAPINE MALEATE
     Dosage: 5 MG, BID (MORNING AND EVENING)
     Route: 060
     Dates: start: 20180618, end: 20180723
  4. ASENAPINE MALEATE UNK [Suspect]
     Active Substance: ASENAPINE MALEATE
     Indication: SCHIZOPHRENIA
     Dosage: 5 MG, QD (EVENING)
     Route: 060
     Dates: start: 20180724, end: 20180920

REACTIONS (2)
  - Suicide attempt [Recovering/Resolving]
  - Hypoaesthesia oral [Recovered/Resolved]

NARRATIVE: CASE EVENT DATE: 20180724
